FAERS Safety Report 22153933 (Version 1)
Quarter: 2023Q1

REPORT INFORMATION
  Report Type: Spontaneous
  Country: PL (occurrence: PL)
  Receive Date: 20230330
  Receipt Date: 20230330
  Transmission Date: 20230417
  Serious: Yes (Hospitalization, Other)
  Sender: FDA-Public Use
  Company Number: PL-ASTELLAS-2023US004968

PATIENT
  Age: 51 Year
  Sex: Male
  Weight: 140 kg

DRUGS (2)
  1. TACROLIMUS [Suspect]
     Active Substance: TACROLIMUS
     Indication: Liver transplant
     Dosage: 2 MG, UNKNOWN FREQ.
     Route: 048
     Dates: start: 201704
  2. MYCOPHENOLATE MOFETIL [Concomitant]
     Active Substance: MYCOPHENOLATE MOFETIL
     Indication: Liver transplant
     Dosage: UNK UNK, UNKNOWN FREQ.

REACTIONS (12)
  - Chronic kidney disease [Unknown]
  - Renal impairment [Unknown]
  - Staphylococcal sepsis [Recovered/Resolved]
  - Hyperkalaemia [Unknown]
  - Pathogen resistance [Unknown]
  - Escherichia infection [Unknown]
  - Type 2 diabetes mellitus [Unknown]
  - COVID-19 [Unknown]
  - Clostridium difficile infection [Unknown]
  - Aspartate aminotransferase increased [Unknown]
  - Alanine aminotransferase increased [Unknown]
  - Hypertension [Unknown]

NARRATIVE: CASE EVENT DATE: 20221109
